FAERS Safety Report 6961209-6 (Version None)
Quarter: 2010Q3

REPORT INFORMATION
  Report Type: 
  Country: None (occurrence: None)
  Receive Date: 20100901
  Receipt Date: 20100823
  Transmission Date: 20110219
  Serious: Yes (Other)
  Sender: FDA-Public Use
  Company Number: DE-AMGEN-KDL426494

PATIENT
  Age: 69 Year
  Sex: Female
  Weight: 55 kg

DRUGS (2)
  1. PROLIA [Suspect]
     Indication: OSTEOPOROSIS POSTMENOPAUSAL
     Route: 058
     Dates: start: 20100716, end: 20100716
  2. BONIVA [Concomitant]
     Dates: end: 20100401

REACTIONS (10)
  - ABDOMINAL PAIN UPPER [None]
  - ABNORMAL FAECES [None]
  - APHONIA [None]
  - ARTHRALGIA [None]
  - BLISTER [None]
  - FATIGUE [None]
  - MONOPLEGIA [None]
  - PRURITUS [None]
  - RIB FRACTURE [None]
  - THYROID OPERATION [None]
